FAERS Safety Report 23329351 (Version 1)
Quarter: 2023Q4

REPORT INFORMATION
  Report Type: Spontaneous
  Country: US (occurrence: US)
  Receive Date: 20231222
  Receipt Date: 20231222
  Transmission Date: 20240110
  Serious: No
  Sender: FDA-Public Use
  Company Number: US-AUROBINDO-AUR-APL-2023-034350

PATIENT
  Age: 68 Year
  Sex: Male
  Weight: 78.458 kg

DRUGS (1)
  1. AMOXICILLIN [Suspect]
     Active Substance: AMOXICILLIN
     Indication: Dental disorder prophylaxis
     Dosage: 500 MILLIGRAM, FOUR TIMES/DAY
     Route: 048
     Dates: start: 20230411, end: 20230411

REACTIONS (8)
  - Feeling abnormal [Recovering/Resolving]
  - Pain in extremity [Recovering/Resolving]
  - Back pain [Recovering/Resolving]
  - Headache [Recovering/Resolving]
  - Hypersensitivity [Recovering/Resolving]
  - Pyrexia [Recovering/Resolving]
  - Chills [Recovering/Resolving]
  - Paraesthesia [Recovering/Resolving]

NARRATIVE: CASE EVENT DATE: 20230411
